FAERS Safety Report 8769487 (Version 1)
Quarter: 2012Q4

REPORT INFORMATION
  Report Type: 
  Country: MX (occurrence: MX)
  Receive Date: 20120904
  Receipt Date: 20120904
  Transmission Date: 20130627
  Serious: Yes (Other)
  Sender: FDA-Public Use
  Company Number: PHHY2010MX094515

PATIENT
  Sex: Male

DRUGS (1)
  1. ONBREZ [Suspect]

REACTIONS (1)
  - Suffocation feeling [Unknown]
